FAERS Safety Report 9349964 (Version 1)
Quarter: 2013Q2

REPORT INFORMATION
  Report Type: Spontaneous
  Country: US (occurrence: US)
  Receive Date: 20130614
  Receipt Date: 20130614
  Transmission Date: 20140414
  Serious: Yes (Hospitalization)
  Sender: FDA-Public Use
  Company Number: PHEH2013US012833

PATIENT
  Age: 38 Year
  Sex: Female

DRUGS (3)
  1. TOBI [Suspect]
     Dosage: 2 DF, DAILY
  2. CAYSTON [Suspect]
     Dosage: UNK, TID
  3. COLISTIN [Suspect]
     Dosage: UNK

REACTIONS (3)
  - Infection [Not Recovered/Not Resolved]
  - Haemoptysis [Not Recovered/Not Resolved]
  - Pyrexia [Not Recovered/Not Resolved]
